FAERS Safety Report 26167215 (Version 1)
Quarter: 2025Q4

REPORT INFORMATION
  Report Type: Spontaneous
  Country: US (occurrence: US)
  Receive Date: 20251217
  Receipt Date: 20251217
  Transmission Date: 20260118
  Serious: Yes (Other)
  Sender: EMCURE PHARMACEUTICALS LTD
  Company Number: US-AVET LIFESCIENCES LTD-2025-AVET-000356

PATIENT
  Age: 56 Year
  Sex: Male

DRUGS (7)
  1. TEMOZOLOMIDE [Suspect]
     Active Substance: TEMOZOLOMIDE
     Indication: Prolactin-producing pituitary tumour
     Dosage: 150 MILLIGRAM/SQ. METER QD (PATIENT BEGAN MONTHLY TEMOZOLOMIDE)
     Route: 065
  2. TEMOZOLOMIDE [Suspect]
     Active Substance: TEMOZOLOMIDE
     Dosage: 200 MILLIGRAM/SQ. METER, QD
     Route: 065
  3. TEMOZOLOMIDE [Suspect]
     Active Substance: TEMOZOLOMIDE
     Dosage: AS OF EARLY 2025,  REMAINS STABLE FOLLOWING 14 CYCLES OF TMZ WITH CAREFUL MANAGEMENT OF HIS ENDOCRIN
     Route: 065
  4. CABERGOLINE [Concomitant]
     Active Substance: CABERGOLINE
     Indication: Blood prolactin increased
     Dosage: 0.25?MG TWICE WEEKLY (WHICH WAS INCREMENTALLY INCREASED TO 1?MG TWICE WEEKLY DUE TO PERSISTENTLY HIG
     Route: 065
  5. CABERGOLINE [Concomitant]
     Active Substance: CABERGOLINE
     Dosage: 1?MG TWICE WEEKLY
     Route: 065
  6. ONDANSETRON [Concomitant]
     Active Substance: ONDANSETRON
     Dosage: UNKNOWN
     Route: 065
  7. SULFAMETHOXAZOLE\TRIMETHOPRIM [Concomitant]
     Active Substance: SULFAMETHOXAZOLE\TRIMETHOPRIM
     Dosage: UNKNOWN
     Route: 065

REACTIONS (2)
  - Neutropenia [Recovering/Resolving]
  - Adrenal insufficiency [Recovering/Resolving]
